FAERS Safety Report 7129035-5 (Version None)
Quarter: 2010Q4

REPORT INFORMATION
  Report Type: 
  Country: None (occurrence: None)
  Receive Date: 20101116
  Receipt Date: 20101103
  Transmission Date: 20110411
  Serious: Yes (Other)
  Sender: FDA-Public Use
  Company Number: ALA_01059_2010

PATIENT
  Sex: Female

DRUGS (6)
  1. REGLAN [Suspect]
     Indication: NAUSEA
     Dosage: (10 MG QID ORAL)
     Route: 048
     Dates: start: 20060101
  2. CYMBALTA [Concomitant]
  3. XANAX [Concomitant]
  4. LYRICA [Concomitant]
  5. FLORINEF [Concomitant]
  6. PEPCID [Concomitant]

REACTIONS (2)
  - CARNITINE PALMITOYLTRANSFERASE DEFICIENCY [None]
  - DYSKINESIA [None]
